FAERS Safety Report 14332135 (Version 12)
Quarter: 2022Q4

REPORT INFORMATION
  Report Type: Report from Study
  Country: JP (occurrence: JP)
  Receive Date: 20171228
  Receipt Date: 20221101
  Transmission Date: 20230113
  Serious: Yes (Hospitalization, Other)
  Sender: FDA-Public Use
  Company Number: JP-VIIVHC-JP2017JPN198665AA

PATIENT

DRUGS (10)
  1. ABACAVIR SULFATE\DOLUTEGRAVIR SODIUM\LAMIVUDINE [Suspect]
     Active Substance: ABACAVIR SULFATE\DOLUTEGRAVIR SODIUM\LAMIVUDINE
     Indication: HIV infection
     Dosage: 1 DF, 1D
     Route: 048
     Dates: start: 20160822, end: 20200924
  2. ATOVAQUONE [Suspect]
     Active Substance: ATOVAQUONE
     Indication: Pneumocystis jirovecii pneumonia
     Dosage: 750 MG, BID
     Route: 048
     Dates: start: 20160812, end: 20170405
  3. ATOVAQUONE [Suspect]
     Active Substance: ATOVAQUONE
     Indication: Prophylaxis
  4. SULFAMETHOXAZOLE\TRIMETHOPRIM [Concomitant]
     Active Substance: SULFAMETHOXAZOLE\TRIMETHOPRIM
     Indication: Pneumocystis jirovecii pneumonia
     Dosage: 4 DF, TID
     Dates: start: 20160802, end: 20160811
  5. PREDONINE [Concomitant]
     Active Substance: PREDNISOLONE
     Indication: Pneumocystis jirovecii pneumonia
     Dosage: 60-20 MG, 1D
     Dates: start: 20160802, end: 20160815
  6. FLUCONAZOLE [Concomitant]
     Active Substance: FLUCONAZOLE
     Indication: Oesophageal candidiasis
     Dosage: 200 MG, QD
     Dates: start: 20160819, end: 20160901
  7. ONDANSETRON [Concomitant]
     Active Substance: ONDANSETRON
     Indication: Prophylaxis
     Dosage: 4 MG, QD
     Dates: start: 20160818, end: 20160818
  8. ONDANSETRON [Concomitant]
     Active Substance: ONDANSETRON
     Dosage: 4 MG, QD
     Dates: start: 20170309, end: 20170309
  9. ONDANSETRON [Concomitant]
     Active Substance: ONDANSETRON
     Dosage: 4 MG, QD
     Dates: start: 20170330, end: 20170330
  10. DOVATO [Concomitant]
     Active Substance: DOLUTEGRAVIR SODIUM\LAMIVUDINE
     Indication: HIV infection
     Dosage: 1 DF, 1D
     Dates: start: 20200925

REACTIONS (6)
  - Kaposi^s sarcoma [Recovering/Resolving]
  - Immune reconstitution inflammatory syndrome [Recovering/Resolving]
  - Anogenital warts [Unknown]
  - Skin papilloma [Unknown]
  - Adjustment disorder [Unknown]
  - Syphilis [Recovered/Resolved]

NARRATIVE: CASE EVENT DATE: 20161101
